FAERS Safety Report 4337028-6 (Version None)
Quarter: 2004Q1

REPORT INFORMATION
  Report Type: 
  Country: None (occurrence: None)
  Receive Date: 20040329
  Receipt Date: 20040115
  Transmission Date: 20041129
  Serious: No
  Sender: FDA-Public Use
  Company Number: USA040156774

PATIENT
  Age: 64 Year
  Sex: Female
  Weight: 82 kg

DRUGS (8)
  1. STRATTERA [Suspect]
     Indication: ATTENTION DEFICIT/HYPERACTIVITY DISORDER
     Dosage: 80 MG/DAY
     Dates: start: 20030501
  2. PAXIL [Concomitant]
  3. RISPERDAL [Concomitant]
  4. KLONOPIN [Concomitant]
  5. DEPAKOTE [Concomitant]
  6. WELLBUTRIN [Concomitant]
  7. SYNTHROID [Concomitant]
  8. CELEBREX [Concomitant]

REACTIONS (2)
  - FEELING ABNORMAL [None]
  - TREMOR [None]
